FAERS Safety Report 7880077-1 (Version None)
Quarter: 2011Q4

REPORT INFORMATION
  Report Type: 
  Country: None (occurrence: None)
  Receive Date: 20111101
  Receipt Date: 20111021
  Transmission Date: 20120403
  Serious: Yes (Hospitalization)
  Sender: FDA-Public Use
  Company Number: US-BAYER-2011-022157

PATIENT
  Age: 30 Year
  Sex: Female
  Weight: 118 kg

DRUGS (6)
  1. YASMIN [Suspect]
     Indication: PRODUCT USED FOR UNKNOWN INDICATION
     Dosage: UNK
     Dates: start: 20050303, end: 20080701
  2. OMEPRAZOLE [Concomitant]
     Dosage: 20 MG, QD
     Route: 048
  3. ZEGERID [Concomitant]
     Dosage: UNK UNK, QD
     Route: 048
  4. DROSPIRENONE AND ETHINYL ESTRADIOL [Suspect]
     Indication: PRODUCT USED FOR UNKNOWN INDICATION
     Dosage: UNK
     Dates: start: 20050303, end: 20090124
  5. IBUPROFEN [Concomitant]
     Dosage: 800 MG, UNK
     Route: 048
  6. SUMATRIPTAN SUCCINATE [Concomitant]
     Dosage: 50 MG, PRN
     Route: 048

REACTIONS (8)
  - EMOTIONAL DISTRESS [None]
  - PAIN [None]
  - MEMORY IMPAIRMENT [None]
  - VEIN DISORDER [None]
  - INTRACRANIAL VENOUS SINUS THROMBOSIS [None]
  - HEADACHE [None]
  - INJURY [None]
  - VISION BLURRED [None]
